FAERS Safety Report 15425707 (Version 2)
Quarter: 2018Q3

REPORT INFORMATION
  Report Type: Spontaneous
  Country: US (occurrence: US)
  Receive Date: 20180925
  Receipt Date: 20180927
  Transmission Date: 20181010
  Serious: No
  Sender: FDA-Public Use
  Company Number: US-PFIZER INC-2018383287

PATIENT
  Sex: Male
  Weight: 86 kg

DRUGS (4)
  1. LYRICA [Suspect]
     Active Substance: PREGABALIN
     Dosage: 400 MG, DAILY (2 CAPSULES DAILY)
  2. LYRICA [Suspect]
     Active Substance: PREGABALIN
     Dosage: 800 MG, DAILY [200 MG CAPSULE / QTY 120 / DAYS SUPPLY 30]
  3. LYRICA [Suspect]
     Active Substance: PREGABALIN
     Dosage: 200 MG, 3X/DAY (TWO 200MG CAPSULES IN THE MORNING AND ONE 200MG CAPSULE IN THE EVENING)
  4. LYRICA [Suspect]
     Active Substance: PREGABALIN
     Indication: NEUROPATHY PERIPHERAL
     Dosage: 200 MG, DAILY
     Dates: start: 2013

REACTIONS (3)
  - Prescribed overdose [Unknown]
  - Drug ineffective [Unknown]
  - Intentional product misuse [Unknown]
